FAERS Safety Report 9527761 (Version 1)
Quarter: 2013Q3

REPORT INFORMATION
  Report Type: Spontaneous
  Country: US (occurrence: None)
  Receive Date: 20130913
  Receipt Date: 20130913
  Transmission Date: 20140515
  Serious: Yes (Hospitalization)
  Sender: FDA-Public Use
  Company Number: SYM-2013-10584

PATIENT
  Age: 42 Year
  Sex: Male

DRUGS (16)
  1. CARDIZEM [Suspect]
     Indication: PRODUCT USED FOR UNKNOWN INDICATION
  2. BLINDED THERAPY (OTHER THERAPEUTICS PRODUCTS) (NULL) [Concomitant]
  3. MULTIVITAMINS (MULTIVITAMINS) (ERGOCALCIFEROL,A SCORBIC ACID, FOLIC ACID, THIAMINE HYDROCHLORIDE, RETINOL, RIBOFLAVIN, NOCITINAMIDE, PANTHENOL) [Concomitant]
  4. FISH OIL (FISH OIL) (FISH OIL) [Concomitant]
  5. METFORMIN (METFORMIN) (METFORMIN) [Concomitant]
  6. ACE INHIBITOR NOS  (ACE INHIBITOR) (NULL) [Concomitant]
  7. DIURETICS  (DIURETICS) [Concomitant]
  8. ASPIRIN (ACETYLSALICYLIC ACID) (ACETYLSALICYLIC ACID) [Concomitant]
  9. HEPARIN (HEPARIN) (HEPARIN) [Concomitant]
  10. CALCIUM CHANNEL BLOCKERS (CALCIUM CHANEL BLOCKERS) [Concomitant]
  11. ANGIOTENSIN II ANTAGONIST  (ANGIOTENSIN II ANTAGONIST, PLAIN) (NULL) [Concomitant]
  12. HYDRALAZINE (HYDRALAZINE) (HYDRALAZINE) [Concomitant]
  13. HYDROCHLOROTHIAZIDE (HYDROCHLOROTHIAZIDE) (HYDROCHLOROTHIAZIDE) [Concomitant]
  14. LOSARTAN (LOSARTAN) (LOSARTAN) [Concomitant]
  15. CRESTOR (ROSUVASTATIN CALCIUM) (ROSUVASTATIN CALCIUM) [Concomitant]
  16. SYMBICORT (BUDESONIDE WITH FORMOTEROL FUMARATE) (FORMOTEROL, FUMARATE, BUDESONIDE) [Concomitant]

REACTIONS (14)
  - Dyspnoea exertional [None]
  - Exercise tolerance decreased [None]
  - Local swelling [None]
  - Abdominal distension [None]
  - Hypertension [None]
  - Cardiac murmur [None]
  - Oxygen saturation decreased [None]
  - Sinus tachycardia [None]
  - Cardiac failure congestive [None]
  - Aortic valve incompetence [None]
  - Mitral valve incompetence [None]
  - Tricuspid valve incompetence [None]
  - Left atrial dilatation [None]
  - Left ventricular hypertrophy [None]
